FAERS Safety Report 20044980 (Version 2)
Quarter: 2022Q1

REPORT INFORMATION
  Report Type: Spontaneous
  Country: US (occurrence: US)
  Receive Date: 20211108
  Receipt Date: 20220105
  Transmission Date: 20220424
  Serious: Yes (Other)
  Sender: FDA-Public Use
  Company Number: US-BAYER-2021A242425

PATIENT
  Age: 26 Year
  Sex: Female
  Weight: 110.9 kg

DRUGS (4)
  1. MIRENA [Suspect]
     Active Substance: LEVONORGESTREL
     Indication: Contraception
     Dosage: 20?G/DAY
     Route: 015
     Dates: start: 20190110, end: 20211108
  2. MIRENA [Suspect]
     Active Substance: LEVONORGESTREL
     Indication: Heavy menstrual bleeding
  3. OSCAL 500+D [Concomitant]
  4. SYNTHROID [Concomitant]
     Active Substance: LEVOTHYROXINE SODIUM

REACTIONS (9)
  - Device dislocation [Recovered/Resolved]
  - Genital haemorrhage [None]
  - Device difficult to use [None]
  - Abdominal pain [None]
  - Device physical property issue [None]
  - Abnormal uterine bleeding [None]
  - Pelvic pain [None]
  - Ovarian cyst [None]
  - Pelvic adhesions [None]

NARRATIVE: CASE EVENT DATE: 20190110
